FAERS Safety Report 7812889-4 (Version None)
Quarter: 2011Q4

REPORT INFORMATION
  Report Type: 
  Country: None (occurrence: None)
  Receive Date: 20111011
  Receipt Date: 20110927
  Transmission Date: 20120403
  Serious: Yes (Other)
  Sender: FDA-Public Use
  Company Number: CN-JNJFOC-20110912021

PATIENT
  Age: 19 Year
  Sex: Male
  Weight: 70 kg

DRUGS (1)
  1. DECITABINE [Suspect]
     Indication: MYELODYSPLASTIC SYNDROME
     Dosage: INTRAVENOUS
     Route: 042

REACTIONS (6)
  - HEPATIC FUNCTION ABNORMAL [None]
  - UPPER RESPIRATORY TRACT INFECTION [None]
  - PRURITUS [None]
  - ORAL PAIN [None]
  - RASH [None]
  - GINGIVAL PAIN [None]
